FAERS Safety Report 7901633-8 (Version None)
Quarter: 2011Q4

REPORT INFORMATION
  Report Type: 
  Country: None (occurrence: None)
  Receive Date: 20111108
  Receipt Date: 20111105
  Transmission Date: 20120403
  Serious: Yes (Other)
  Sender: FDA-Public Use
  Company Number: FR-ROCHE-1009887

PATIENT
  Age: 53 Year
  Sex: Male

DRUGS (2)
  1. AVASTIN [Suspect]
     Dosage: 25 MG/ML
  2. AVASTIN [Suspect]
     Indication: RENAL CANCER

REACTIONS (1)
  - MICTURITION DISORDER [None]
